FAERS Safety Report 9540542 (Version 1)
Quarter: 2013Q3

REPORT INFORMATION
  Report Type: Report from Study
  Country: GB (occurrence: GB)
  Receive Date: 20130920
  Receipt Date: 20130920
  Transmission Date: 20140515
  Serious: Yes (Hospitalization)
  Sender: FDA-Public Use
  Company Number: GB-PFIZER INC-2013264772

PATIENT
  Age: 69 Year
  Sex: Female

DRUGS (1)
  1. CELECOXIB [Suspect]
     Indication: OSTEOARTHRITIS
     Dosage: 300 MG, 2X/DAY
     Route: 048
     Dates: start: 20091029

REACTIONS (2)
  - Atrial fibrillation [Recovered/Resolved]
  - Arthropathy [Recovered/Resolved]
